FAERS Safety Report 19925945 (Version 1)
Quarter: 2021Q4

REPORT INFORMATION
  Report Type: Spontaneous
  Country: AU (occurrence: AU)
  Receive Date: 20211006
  Receipt Date: 20211006
  Transmission Date: 20220303
  Serious: Yes (Hospitalization, Other)
  Sender: FDA-Public Use
  Company Number: 2021A754115

PATIENT
  Age: 69 Year
  Sex: Male
  Weight: 93 kg

DRUGS (8)
  1. ESOMEPRAZOLE. [Interacting]
     Active Substance: ESOMEPRAZOLE MAGNESIUM
     Dosage: 20.0MG UNKNOWN
     Route: 048
  2. ROSUVASTATIN [Interacting]
     Active Substance: ROSUVASTATIN
     Dosage: 10.0MG UNKNOWN
     Route: 048
  3. ENTRESTO [Interacting]
     Active Substance: SACUBITRIL\VALSARTAN
     Dosage: UNKNOWN
     Route: 065
  4. BISOPROLOL [Interacting]
     Active Substance: BISOPROLOL
     Route: 065
  5. ASPIRIN [Concomitant]
     Active Substance: ASPIRIN
  6. VENLAFAXINE HYDROCHLORIDE [Concomitant]
     Active Substance: VENLAFAXINE HYDROCHLORIDE
  7. SPIRACTIN [Concomitant]
     Dosage: 12.5
  8. DAPAGLIFLOZIN [Concomitant]
     Active Substance: DAPAGLIFLOZIN

REACTIONS (17)
  - Drug interaction [Unknown]
  - Pleural effusion [Unknown]
  - Cardiac disorder [Not Recovered/Not Resolved]
  - Myocardial infarction [Unknown]
  - Dyspnoea exertional [Unknown]
  - Heart rate irregular [Unknown]
  - Multiple fractures [Unknown]
  - Gait disturbance [Unknown]
  - Haemorrhage [Unknown]
  - Contusion [Unknown]
  - Thirst [Unknown]
  - Pain [Unknown]
  - Back disorder [Unknown]
  - Loss of personal independence in daily activities [Unknown]
  - Mood swings [Recovering/Resolving]
  - Nasopharyngitis [Unknown]
  - Rhinorrhoea [Unknown]
